FAERS Safety Report 10211034 (Version 1)
Quarter: 2014Q2

REPORT INFORMATION
  Report Type: Spontaneous
  Country: US (occurrence: None)
  Receive Date: 20140530
  Receipt Date: 20140530
  Transmission Date: 20141212
  Serious: Yes (Other)
  Sender: FDA-Public Use
  Company Number: None

PATIENT
  Age: 9 Year
  Sex: Male
  Weight: 19.5 kg

DRUGS (1)
  1. CONCERTA [Suspect]
     Indication: ATTENTION DEFICIT/HYPERACTIVITY DISORDER
     Dosage: 1 TABLET  ONCE DAILY TAKEN BY MOUTH
     Route: 048
     Dates: start: 20140210, end: 20140310

REACTIONS (6)
  - Mood swings [None]
  - Aggression [None]
  - Agitation [None]
  - Drug effect decreased [None]
  - Product substitution issue [None]
  - Condition aggravated [None]
